FAERS Safety Report 15202773 (Version 4)
Quarter: 2019Q1

REPORT INFORMATION
  Report Type: Spontaneous
  Country: CA (occurrence: CA)
  Receive Date: 20180726
  Receipt Date: 20190228
  Transmission Date: 20190417
  Serious: Yes (Other)
  Sender: FDA-Public Use
  Company Number: CA-AMGEN-CANSP2017162692

PATIENT
  Age: 65 Year
  Sex: Male

DRUGS (7)
  1. ENBREL [Suspect]
     Active Substance: ETANERCEPT
     Indication: RHEUMATOID ARTHRITIS
     Dosage: UNK UNK, QWK
     Route: 065
  2. DESOXIMETASONE. [Concomitant]
     Active Substance: DESOXIMETASONE
     Indication: RHEUMATOID ARTHRITIS
     Dosage: UNK
     Route: 065
  3. XELJANZ [Suspect]
     Active Substance: TOFACITINIB CITRATE
     Dosage: 5 MG, BID
     Route: 048
     Dates: start: 2017, end: 201801
  4. CELEBREX [Suspect]
     Active Substance: CELECOXIB
     Indication: ARTHRITIS
     Dosage: UNK
     Route: 065
  5. XELJANZ [Suspect]
     Active Substance: TOFACITINIB CITRATE
     Indication: RHEUMATOID ARTHRITIS
     Dosage: 5 MG, QD
     Route: 048
     Dates: start: 20171010, end: 2017
  6. XELJANZ [Suspect]
     Active Substance: TOFACITINIB CITRATE
     Dosage: 5 MG, BID
     Route: 048
     Dates: start: 201801, end: 2018
  7. ORENCIA [Concomitant]
     Active Substance: ABATACEPT
     Dosage: UNK
     Dates: start: 2018

REACTIONS (12)
  - Swelling [Recovering/Resolving]
  - Arthralgia [Not Recovered/Not Resolved]
  - Pain [Unknown]
  - Joint swelling [Unknown]
  - Musculoskeletal pain [Not Recovered/Not Resolved]
  - Osteoarthritis [Not Recovered/Not Resolved]
  - Sensitivity to weather change [Not Recovered/Not Resolved]
  - Lower respiratory tract infection [Not Recovered/Not Resolved]
  - Drug ineffective [Not Recovered/Not Resolved]
  - Pain in extremity [Recovering/Resolving]
  - Decreased activity [Not Recovered/Not Resolved]
  - Drug effect decreased [Unknown]

NARRATIVE: CASE EVENT DATE: 201801
